FAERS Safety Report 4832783-0 (Version None)
Quarter: 2005Q4

REPORT INFORMATION
  Report Type: 
  Country: None (occurrence: None)
  Receive Date: 20051117
  Receipt Date: 20051108
  Transmission Date: 20060501
  Serious: Yes (Life-Threatening, Hospitalization, Other)
  Sender: FDA-Public Use
  Company Number: HQWYE454608NOV05

PATIENT
  Age: 51 Year
  Sex: Female

DRUGS (6)
  1. EFFEXOR XR [Suspect]
     Dosage: SEE IMAGE
     Dates: start: 20030101, end: 20041219
  2. EFFEXOR XR [Suspect]
     Dosage: SEE IMAGE
     Dates: start: 20041220, end: 20050705
  3. EFFEXOR XR [Suspect]
     Dosage: SEE IMAGE
     Dates: start: 20050711
  4. SINEQUAN [Concomitant]
  5. DEPAKOTE [Concomitant]
  6. ZYPREXA [Concomitant]

REACTIONS (5)
  - CONVULSION [None]
  - DRUG LEVEL ABOVE THERAPEUTIC [None]
  - DRUG TOXICITY [None]
  - LOSS OF CONSCIOUSNESS [None]
  - RESPIRATORY DISTRESS [None]
